FAERS Safety Report 13650099 (Version 1)
Quarter: 2017Q2

REPORT INFORMATION
  Report Type: Spontaneous
  Country: US (occurrence: US)
  Receive Date: 20170614
  Receipt Date: 20170614
  Transmission Date: 20170830
  Serious: No
  Sender: FDA-Public Use
  Company Number: US-PFIZER INC-2017254358

PATIENT
  Age: 66 Year
  Sex: Female
  Weight: 69.39 kg

DRUGS (2)
  1. IBRANCE [Suspect]
     Active Substance: PALBOCICLIB
     Indication: BREAST CANCER METASTATIC
     Dosage: 100 MG, CYCLIC (D 1-21 Q28 DAYS)
     Route: 048
     Dates: start: 20170519
  2. FASLODEX [Suspect]
     Active Substance: FULVESTRANT
     Dosage: UNK

REACTIONS (1)
  - Liver function test abnormal [Unknown]
